FAERS Safety Report 6619409-0 (Version None)
Quarter: 2010Q1

REPORT INFORMATION
  Report Type: 
  Country: None (occurrence: None)
  Receive Date: 20100309
  Receipt Date: 20100302
  Transmission Date: 20100710
  Serious: Yes (Hospitalization)
  Sender: FDA-Public Use
  Company Number: US-RB-000770-10

PATIENT
  Age: 41 Year
  Sex: Male

DRUGS (9)
  1. SUBOXONE [Suspect]
     Route: 060
     Dates: start: 20020101, end: 20090501
  2. SUBOXONE [Suspect]
     Route: 060
     Dates: start: 20090601
  3. CRYSTAL METHAMPHETAMINE [Suspect]
     Indication: DRUG USE FOR UNKNOWN INDICATION
     Dosage: DOSING DETAILS UNKNOWN
     Route: 065
  4. ZOLOFT [Suspect]
     Indication: DRUG USE FOR UNKNOWN INDICATION
     Dosage: DOSING DETAILS UNKNOWN
     Route: 065
  5. ADDERALL 30 [Concomitant]
     Dosage: DOSING DETAILS UNKNOWN
     Route: 065
  6. ADDERALL 30 [Concomitant]
     Indication: DEPRESSION
     Dosage: DOSING DETAILS UNKNOWN
     Route: 065
  7. PRISTIQ [Suspect]
     Indication: DEPRESSION
     Route: 065
     Dates: start: 20090201, end: 20090501
  8. LUVOX CR [Suspect]
     Indication: DEPRESSION
     Route: 065
     Dates: start: 20090201, end: 20090501
  9. ZYVOX [Suspect]
     Indication: STAPHYLOCOCCAL INFECTION
     Dosage: DOSING DETAILS UNKNOWN
     Route: 065
     Dates: start: 20090401, end: 20090501

REACTIONS (15)
  - AGGRESSION [None]
  - ALOPECIA [None]
  - DRUG WITHDRAWAL SYNDROME [None]
  - FOLLICULITIS [None]
  - HALLUCINATIONS, MIXED [None]
  - INSOMNIA [None]
  - LABORATORY TEST ABNORMAL [None]
  - LIMB DISCOMFORT [None]
  - MANIA [None]
  - OEDEMA PERIPHERAL [None]
  - PSYCHOTIC DISORDER [None]
  - ROAD TRAFFIC ACCIDENT [None]
  - SEROTONIN SYNDROME [None]
  - STAPHYLOCOCCAL INFECTION [None]
  - WEIGHT INCREASED [None]
